FAERS Safety Report 7237576-5 (Version None)
Quarter: 2011Q1

REPORT INFORMATION
  Report Type: 
  Country: None (occurrence: None)
  Receive Date: 20110113
  Receipt Date: 20110103
  Transmission Date: 20110831
  Serious: Yes (Hospitalization, Other)
  Sender: FDA-Public Use
  Company Number: NSR_00120_2011

PATIENT
  Sex: Male
  Weight: 158.759 kg

DRUGS (5)
  1. COLCHICINE [Suspect]
     Indication: GOUT
     Dosage: 0.6 MG QD PRN ORAL
     Route: 048
     Dates: start: 20101001, end: 20101212
  2. WARFARIN SODIUM [Concomitant]
  3. PREVIOUS MEDS [Concomitant]
  4. ALLOPURINOL 100MG TAB [Suspect]
     Indication: GOUT
     Dosage: 100 MG QD ORAL
     Route: 048
     Dates: start: 20101001, end: 20101206
  5. OTHER UNSPECIFIED DRUGS [Concomitant]

REACTIONS (6)
  - BLOOD GLUCOSE ABNORMAL [None]
  - FEELING COLD [None]
  - HAEMORRHAGE [None]
  - PRURITUS GENERALISED [None]
  - HYPOTENSION [None]
  - SKIN DISORDER [None]
